FAERS Safety Report 14599780 (Version 2)
Quarter: 2018Q2

REPORT INFORMATION
  Report Type: Spontaneous
  Country: US (occurrence: US)
  Receive Date: 20180305
  Receipt Date: 20180628
  Transmission Date: 20180711
  Serious: No
  Sender: FDA-Public Use
  Company Number: US-GLENMARK PHARMACEUTICALS-2018GMK030706

PATIENT

DRUGS (1)
  1. ATOVAQUONE/PROGUANIL HYDROCHLORIDE [Suspect]
     Active Substance: ATOVAQUONE\PROGUANIL HYDROCHLORIDE
     Indication: LYME DISEASE
     Dosage: 2 DF, QD (MONDAY, WEDNESDAY AND FRIDAY)
     Route: 065

REACTIONS (3)
  - No adverse event [Unknown]
  - Product use issue [Unknown]
  - Product use in unapproved indication [Unknown]
